FAERS Safety Report 5286542-8 (Version None)
Quarter: 2007Q2

REPORT INFORMATION
  Report Type: 
  Country: None (occurrence: None)
  Receive Date: 20070404
  Receipt Date: 20070326
  Transmission Date: 20071010
  Serious: Yes (Death)
  Sender: FDA-Public Use
  Company Number: JP-ROCHE-487812

PATIENT
  Age: 36 Year
  Sex: Female

DRUGS (7)
  1. TAMIFLU [Suspect]
     Route: 048
     Dates: start: 20070309, end: 20070309
  2. SOLITA-T3 [Concomitant]
     Route: 041
     Dates: start: 20070308, end: 20070310
  3. GLUCOSE [Concomitant]
     Route: 041
     Dates: start: 20070309, end: 20070309
  4. FUTHAN [Concomitant]
     Route: 041
     Dates: start: 20070309, end: 20070309
  5. GASTER [Concomitant]
     Dosage: DRUG NAME: GASTER D.
     Route: 048
     Dates: start: 20070309, end: 20070309
  6. BERIZYM [Concomitant]
     Route: 048
     Dates: start: 20070309, end: 20070309
  7. MEDICON [Concomitant]
     Route: 048
     Dates: start: 20070309, end: 20070309

REACTIONS (1)
  - SUDDEN DEATH [None]
